FAERS Safety Report 5216159-2 (Version None)
Quarter: 2006Q4

REPORT INFORMATION
  Report Type: 
  Country: None (occurrence: None)
  Receive Date: 20061122
  Receipt Date: 20060623
  Transmission Date: 20070319
  Serious: Yes (Hospitalization)
  Sender: FDA-Public Use
  Company Number: 2006081686

PATIENT
  Age: 56 Year
  Sex: Male

DRUGS (2)
  1. LIPITOR [Suspect]
     Indication: ILL-DEFINED DISORDER
     Dates: end: 20060621
  2. ASPIRIN [Concomitant]

REACTIONS (3)
  - CHEST PAIN [None]
  - HYPOAESTHESIA [None]
  - PRURITUS [None]
